FAERS Safety Report 18538853 (Version 1)
Quarter: 2020Q4

REPORT INFORMATION
  Report Type: Spontaneous
  Country: AR (occurrence: AR)
  Receive Date: 20201124
  Receipt Date: 20201124
  Transmission Date: 20210114
  Serious: Yes (Death, Hospitalization, Other)
  Sender: FDA-Public Use
  Company Number: AR-AMGEN-ARGSP2020189105

PATIENT

DRUGS (3)
  1. FILGRASTIM [Suspect]
     Active Substance: FILGRASTIM
     Indication: NEUTROPENIA
     Dosage: UNK
     Route: 065
  2. RITUXIMAB. [Concomitant]
     Active Substance: RITUXIMAB
     Indication: NON-HODGKIN^S LYMPHOMA
     Dosage: 250 MILLIGRAM/SQ. METER
  3. ZEVAMAB [Concomitant]
     Indication: NON-HODGKIN^S LYMPHOMA
     Dosage: 0.3 OR 0.4 MCI

REACTIONS (5)
  - Sepsis [Fatal]
  - Febrile neutropenia [Unknown]
  - Bone marrow failure [Fatal]
  - Pancytopenia [Unknown]
  - Death [Fatal]
